FAERS Safety Report 18585677 (Version 2)
Quarter: 2021Q1

REPORT INFORMATION
  Report Type: Spontaneous
  Country: US (occurrence: US)
  Receive Date: 20201207
  Receipt Date: 20210108
  Transmission Date: 20210419
  Serious: No
  Sender: FDA-Public Use
  Company Number: US-PFIZER INC-2020475450

PATIENT
  Age: 52 Year
  Sex: Female
  Weight: 113.4 kg

DRUGS (2)
  1. CHANTIX [Suspect]
     Active Substance: VARENICLINE TARTRATE
     Indication: SMOKING CESSATION THERAPY
     Dosage: 1 MG, DAILY (1 THEN 2 A DAY)
     Dates: start: 2020, end: 2020
  2. CHANTIX [Suspect]
     Active Substance: VARENICLINE TARTRATE
     Dosage: 2 MG, DAILY (1 THEN 2 A DAY)
     Dates: start: 2020, end: 2020

REACTIONS (2)
  - Blood cholesterol decreased [Unknown]
  - Abnormal dreams [Unknown]

NARRATIVE: CASE EVENT DATE: 2020
